FAERS Safety Report 8877575 (Version 1)
Quarter: 2012Q4

REPORT INFORMATION
  Report Type: 
  Country: IT (occurrence: IT)
  Receive Date: 20121024
  Receipt Date: 20121024
  Transmission Date: 20130627
  Serious: Yes (Other)
  Sender: FDA-Public Use
  Company Number: IT-ROCHE-1145883

PATIENT

DRUGS (3)
  1. BEVACIZUMAB [Suspect]
     Indication: NEUROENDOCRINE TUMOUR
     Route: 042
  2. CAPECITABINE [Suspect]
     Indication: NEUROENDOCRINE TUMOUR
     Route: 065
  3. OCTREOTIDE [Suspect]
     Indication: NEUROENDOCRINE TUMOUR
     Dosage: 20-30 mg
     Route: 065

REACTIONS (3)
  - Nephropathy toxic [Unknown]
  - Palmar-plantar erythrodysaesthesia syndrome [Unknown]
  - Proteinuria [Unknown]
